FAERS Safety Report 6696581 (Version 5)
Quarter: 2013Q1

REPORT INFORMATION
  Report Type: Spontaneous
  Country: SE (occurrence: SE)
  Receive Date: 20080711
  Receipt Date: 20130320
  Transmission Date: 20140127
  Serious: Yes (Death, Hospitalization)
  Sender: FDA-Public Use
  Company Number: PHHY2008SE12415

PATIENT
  Age: 87 Year
  Sex: Male

DRUGS (10)
  1. EXELON PATCH [Suspect]
     Indication: DEMENTIA
     Dosage: 9.5 MG/24 HOURS
     Route: 062
     Dates: start: 200801
  2. EXELON PATCH [Suspect]
     Dosage: 6 PATCHES OF 9.5 MG/24 HOURS
     Route: 062
     Dates: start: 20080625
  3. EXELON PATCH [Suspect]
     Dosage: 6 PATCHES OF 9.5 MG/24 HOURS
     Route: 062
     Dates: start: 20080626
  4. ANTIDEPRESSANTS [Concomitant]
  5. DIMETHICONE [Concomitant]
     Dosage: 200 MG, TID
  6. ACETYLSALICYLIC ACID [Concomitant]
     Dosage: 75 MG, QD
  7. ETILEFRINE [Concomitant]
  8. ALPRAZOLAM [Concomitant]
     Dosage: 0.5 MG, QD
  9. ESCITALOPRAM [Concomitant]
     Dosage: 20 MG, QD
  10. MIRTAZAPINE [Concomitant]
     Dosage: 15 MG, QD

REACTIONS (19)
  - Renal failure acute [Fatal]
  - Renal tubular necrosis [Fatal]
  - Anuria [Fatal]
  - Dehydration [Fatal]
  - Vomiting [Fatal]
  - Hyperhidrosis [Fatal]
  - Azotaemia [Fatal]
  - Dizziness [Fatal]
  - Heart rate irregular [Fatal]
  - Electrolyte imbalance [Fatal]
  - Nausea [Fatal]
  - Toxicity to various agents [Fatal]
  - Overdose [Fatal]
  - Fall [Unknown]
  - Urinary tract infection [Unknown]
  - Confusional state [Unknown]
  - Incorrect dose administered [Unknown]
  - Wound [Unknown]
  - Drug label confusion [Unknown]
